APPROVED DRUG PRODUCT: ETHAMOLIN
Active Ingredient: ETHANOLAMINE OLEATE
Strength: 50MG/ML
Dosage Form/Route: INJECTABLE;INJECTION
Application: N019357 | Product #001
Applicant: QOL MEDICAL LLC
Approved: Dec 22, 1988 | RLD: Yes | RS: Yes | Type: RX